FAERS Safety Report 12111892 (Version 2)
Quarter: 2016Q1

REPORT INFORMATION
  Report Type: Spontaneous
  Country: CO (occurrence: CO)
  Receive Date: 20160224
  Receipt Date: 20160302
  Transmission Date: 20160526
  Serious: Yes (Hospitalization, Other)
  Sender: FDA-Public Use
  Company Number: CO-AMGEN-COLSP2015099239

PATIENT
  Age: 60 Year
  Sex: Male

DRUGS (1)
  1. ENBREL [Suspect]
     Active Substance: ETANERCEPT
     Indication: RHEUMATOID ARTHRITIS
     Dosage: 50 MG, WEEKLY
     Route: 058
     Dates: start: 2014, end: 201502

REACTIONS (12)
  - Hypotension [Recovered/Resolved]
  - Lumbar vertebral fracture [Unknown]
  - Conjunctival haemorrhage [Unknown]
  - Impaired healing [Unknown]
  - Hypersensitivity [Recovered/Resolved]
  - Lacrimation increased [Recovered/Resolved]
  - Blister [Recovered/Resolved]
  - Herpes virus infection [Recovered/Resolved]
  - Synovitis [Unknown]
  - Conjunctival hyperaemia [Unknown]
  - Cellulitis [Unknown]
  - Blood glucose abnormal [Recovered/Resolved]

NARRATIVE: CASE EVENT DATE: 2014
